FAERS Safety Report 9989618 (Version 1)
Quarter: 2014Q1

REPORT INFORMATION
  Report Type: Report from Study
  Country: US (occurrence: US)
  Receive Date: 20140310
  Receipt Date: 20140310
  Transmission Date: 20141002
  Serious: No
  Sender: FDA-Public Use
  Company Number: US-ABBVIE-13P-163-1136806-00

PATIENT
  Age: 56 Year
  Sex: Male

DRUGS (15)
  1. HUMIRA [Suspect]
     Indication: PSORIATIC ARTHROPATHY
     Dates: start: 201303
  2. ATENOLOL [Concomitant]
     Indication: BLOOD PRESSURE
  3. AMLODIPINE [Concomitant]
     Indication: BLOOD PRESSURE
  4. LOSARTAN [Concomitant]
     Indication: BLOOD PRESSURE
  5. TRAZODONE [Concomitant]
     Indication: DEPRESSION
  6. XANAX [Concomitant]
     Indication: ANXIETY
  7. PREDNISONE [Concomitant]
     Indication: GOUT
  8. VICODIN [Concomitant]
     Indication: PAIN
  9. VENTOLIN [Concomitant]
     Indication: ASTHMA
  10. ADVAIR [Concomitant]
     Indication: ASTHMA
     Dosage: 750/50
  11. METHOTREXATE [Concomitant]
     Indication: PRODUCT USED FOR UNKNOWN INDICATION
     Dosage: PILLS
  12. FOLIC ACID [Concomitant]
     Indication: PRODUCT USED FOR UNKNOWN INDICATION
  13. PRAVASTATIN [Concomitant]
     Indication: BLOOD CHOLESTEROL
  14. COLCRYS [Concomitant]
     Indication: PRODUCT USED FOR UNKNOWN INDICATION
  15. PROBENECID [Concomitant]
     Indication: GOUT

REACTIONS (2)
  - Gout [Recovered/Resolved]
  - Injection site haemorrhage [Recovered/Resolved]
